FAERS Safety Report 5143837-6 (Version None)
Quarter: 2006Q4

REPORT INFORMATION
  Report Type: 
  Country: None (occurrence: None)
  Receive Date: 20061106
  Receipt Date: 20061024
  Transmission Date: 20070319
  Serious: Yes (Hospitalization)
  Sender: FDA-Public Use
  Company Number: HQWYE555025OCT06

PATIENT
  Sex: Male

DRUGS (3)
  1. ENBREL [Suspect]
     Indication: RHEUMATOID ARTHRITIS
     Route: 058
     Dates: start: 20060828, end: 20061019
  2. DECADRON [Suspect]
     Dosage: UNKNOWN
     Route: 048
  3. D-PENICILLAMINE [Concomitant]
     Route: 048

REACTIONS (2)
  - ENTERITIS INFECTIOUS [None]
  - PNEUMOCYSTIS JIROVECI PNEUMONIA [None]
